FAERS Safety Report 15776225 (Version 8)
Quarter: 2020Q2

REPORT INFORMATION
  Report Type: Report from Study
  Country: JP (occurrence: JP)
  Receive Date: 20181231
  Receipt Date: 20200623
  Transmission Date: 20200713
  Serious: Yes (Death, Life-Threatening, Hospitalization, Other)
  Sender: FDA-Public Use
  Company Number: JP-ASTELLAS-2018JP023610

PATIENT
  Age: 11 Year
  Sex: Male
  Weight: 64 kg

DRUGS (50)
  1. AMBISOME [Suspect]
     Active Substance: AMPHOTERICIN B
     Indication: PYREXIA
     Dosage: 200 MG/DAY, UNKNOWN FREQ.
     Route: 041
     Dates: start: 20190101, end: 20190115
  2. AMBISOME [Suspect]
     Active Substance: AMPHOTERICIN B
     Indication: PROPHYLAXIS
  3. SOLU-CORTEF [Concomitant]
     Active Substance: HYDROCORTISONE SODIUM SUCCINATE
     Indication: PROPHYLAXIS
  4. ZOSYN [Concomitant]
     Active Substance: PIPERACILLIN SODIUM\TAZOBACTAM SODIUM
     Indication: C-REACTIVE PROTEIN INCREASED
     Dosage: 9-18 G/DAY, AS NEEDED
     Route: 042
     Dates: start: 20181224, end: 20181227
  5. LOCOID [Concomitant]
     Active Substance: HYDROCORTISONE BUTYRATE
     Indication: RASH
     Route: 065
     Dates: start: 20181229, end: 20181229
  6. SEPAMIT [Concomitant]
     Active Substance: NIFEDIPINE
     Indication: HYPERTENSION
     Dosage: 10 MG/DAY, UNKNOWN FREQ.
     Route: 048
     Dates: start: 20190206, end: 20190206
  7. ASP2215 [Suspect]
     Active Substance: GILTERITINIB
     Dosage: 80 MG AND 40 MG, EVERY OTHER DAY
     Route: 048
     Dates: start: 20190112, end: 20190117
  8. ASP2215 [Suspect]
     Active Substance: GILTERITINIB
     Route: 048
     Dates: start: 20190118, end: 20190128
  9. PREDONINE [Suspect]
     Active Substance: PREDNISOLONE
     Indication: PRODUCT USED FOR UNKNOWN INDICATION
     Dosage: 5-180 MG/DAY, UNKNOWN FREQ.
     Route: 048
  10. CALONAL [Concomitant]
     Active Substance: ACETAMINOPHEN
     Indication: BACK PAIN
  11. ZOSYN [Concomitant]
     Active Substance: PIPERACILLIN SODIUM\TAZOBACTAM SODIUM
     Indication: FEBRILE NEUTROPENIA
  12. ADALAT [Concomitant]
     Active Substance: NIFEDIPINE
     Dosage: 2 DF/DAY, UNKNOWN FREQ.
     Route: 048
     Dates: start: 20190213, end: 20190213
  13. ASP2215 [Suspect]
     Active Substance: GILTERITINIB
     Route: 048
     Dates: start: 20181230, end: 20190101
  14. ASP2215 [Suspect]
     Active Substance: GILTERITINIB
     Route: 048
     Dates: start: 20190129, end: 20190208
  15. ATARAX-P [HYDROXYZINE HYDROCHLORIDE] [Concomitant]
     Indication: RASH
     Route: 065
     Dates: start: 20181211, end: 20190214
  16. ASP2215 [Suspect]
     Active Substance: GILTERITINIB
     Indication: ACUTE MYELOID LEUKAEMIA RECURRENT
     Route: 048
     Dates: start: 20181210, end: 20181225
  17. BAKTAR [Suspect]
     Active Substance: SULFAMETHOXAZOLE\TRIMETHOPRIM
     Indication: PRODUCT USED FOR UNKNOWN INDICATION
     Dosage: UNK UNK, UNKNOWN FREQ.
     Route: 065
  18. VFEND [Concomitant]
     Active Substance: VORICONAZOLE
     Dosage: 400 MG/DAY, UNKNOWN FREQ.
     Route: 041
     Dates: start: 20190207, end: 20190216
  19. ADALAT [Concomitant]
     Active Substance: NIFEDIPINE
     Indication: PRODUCT USED FOR UNKNOWN INDICATION
     Dosage: 1 DF/DAY, UNKNOWN FREQ.
     Route: 048
     Dates: start: 20181229, end: 20181229
  20. KCL CORRECTIVE [Concomitant]
     Indication: HYPOKALAEMIA
     Dosage: 10-80 ML/DAY, UNKNOWN FREQ.
     Route: 065
     Dates: start: 20190104, end: 20190121
  21. ASP2215 [Suspect]
     Active Substance: GILTERITINIB
     Route: 048
     Dates: start: 20190209, end: 20190214
  22. PREDONINE [PREDNISOLONE SODIUM SUCCINATE] [Suspect]
     Active Substance: PREDNISOLONE SODIUM SUCCINATE
     Indication: C-REACTIVE PROTEIN INCREASED
     Dosage: 60-90 MG/DAY, UNKNOWN FREQ.
     Route: 065
     Dates: start: 20181228, end: 20190107
  23. MAGNESIUM OXIDE. [Concomitant]
     Active Substance: MAGNESIUM OXIDE
     Indication: ABDOMINAL PAIN LOWER
     Dosage: 2.4-4.8 G, AS NEEDED
     Route: 048
     Dates: start: 20181224, end: 20190214
  24. MAGNESIUM OXIDE. [Concomitant]
     Active Substance: MAGNESIUM OXIDE
     Indication: PROPHYLAXIS
  25. ADOAIR [Concomitant]
     Active Substance: FLUTICASONE PROPIONATE\SALMETEROL XINAFOATE
     Indication: PRODUCT USED FOR UNKNOWN INDICATION
     Dosage: 1 IU/DAY, AS NEEDED
     Route: 050
     Dates: start: 20181226
  26. VICCLOX [ACICLOVIR] [Concomitant]
     Active Substance: ACYCLOVIR
     Indication: PROPHYLAXIS
     Dosage: 625-1875 MG/DAY, UNKNOWN FREQ.
     Route: 041
     Dates: start: 20181227, end: 20190104
  27. IBUPROFEN. [Concomitant]
     Active Substance: IBUPROFEN
     Indication: PRODUCT USED FOR UNKNOWN INDICATION
     Dosage: 600 MG/DAY, UNKNOWN FREQ.
     Route: 048
     Dates: start: 20181225, end: 20181231
  28. MORPHINE HYDROCHLORIDE [Concomitant]
     Active Substance: MORPHINE HYDROCHLORIDE
     Indication: PAIN MANAGEMENT
     Dosage: 30-160 MG, AS NEEDED
     Route: 065
     Dates: start: 20181227, end: 20190216
  29. NEUTROGIN [Concomitant]
     Active Substance: LENOGRASTIM
     Indication: PRODUCT USED FOR UNKNOWN INDICATION
     Route: 065
     Dates: start: 20181228, end: 20190216
  30. VENOGLOBULIN IH [Concomitant]
     Active Substance: HUMAN IMMUNOGLOBULIN G
     Indication: C-REACTIVE PROTEIN INCREASED
     Dosage: 5 G/DAY, UNKNOWN FREQ.
     Route: 065
     Dates: start: 20181228, end: 20181230
  31. TEICOPLANIN [Concomitant]
     Active Substance: TEICOPLANIN
     Indication: PRODUCT USED FOR UNKNOWN INDICATION
     Dosage: 400-800MG/DAY UNKNOWN FREQ.
     Route: 041
     Dates: start: 20181228, end: 20190104
  32. POLARAMINE [Concomitant]
     Active Substance: DEXCHLORPHENIRAMINE MALEATE
     Indication: PRODUCT USED FOR UNKNOWN INDICATION
     Dosage: 6 MG/DAY, UNKNOWN FREQ.
     Route: 048
     Dates: start: 20181229, end: 20190111
  33. PREDONINE [Suspect]
     Active Substance: PREDNISOLONE
     Indication: PROPHYLAXIS
  34. PREDONINE [PREDNISOLONE SODIUM SUCCINATE] [Suspect]
     Active Substance: PREDNISOLONE SODIUM SUCCINATE
     Dosage: 15 MG/DAY, UNKNOWN FREQ.
     Route: 065
     Dates: end: 20190120
  35. ATARAX-P [HYDROXYZINE HYDROCHLORIDE] [Concomitant]
     Indication: PROPHYLAXIS
  36. ZOSYN [Concomitant]
     Active Substance: PIPERACILLIN SODIUM\TAZOBACTAM SODIUM
     Indication: BONE MARROW FAILURE
     Dosage: 9-18 G/DAY, AS NEEDED
     Route: 042
     Dates: start: 20190104, end: 20190115
  37. PICOSULFATE [Concomitant]
     Active Substance: SODIUM PICOSULFATE
     Indication: ABDOMINAL PAIN LOWER
     Dosage: 10-15 DROPS/DAY, UNKNOWN FREQ.
     Route: 048
     Dates: start: 20181224, end: 20190214
  38. ACETAMINOPHEN. [Concomitant]
     Active Substance: ACETAMINOPHEN
     Indication: PNEUMONIA FUNGAL
     Dosage: 700 MG/DAY, UNKNOWN FREQ.
     Route: 042
     Dates: start: 20190207, end: 20190216
  39. ADOAIR [Concomitant]
     Active Substance: FLUTICASONE PROPIONATE\SALMETEROL XINAFOATE
     Indication: OBLITERATIVE BRONCHIOLITIS
  40. ROPION [Concomitant]
     Active Substance: FLURBIPROFEN AXETIL
     Indication: PRODUCT USED FOR UNKNOWN INDICATION
     Dosage: 50 MG/DAY, UNKNOWN FREQ.
     Route: 041
     Dates: start: 20181227, end: 20181227
  41. ROPION [Concomitant]
     Active Substance: FLURBIPROFEN AXETIL
     Dosage: 50-100 MG, AS NEEDED
     Route: 041
     Dates: end: 20190204
  42. MEROPENEM. [Concomitant]
     Active Substance: MEROPENEM
     Indication: C-REACTIVE PROTEIN INCREASED
     Dosage: 0.75-3 G/DAY, UNKNOWN FREQ.
     Route: 041
     Dates: start: 20181227, end: 20190115
  43. VFEND [Concomitant]
     Active Substance: VORICONAZOLE
     Indication: PNEUMONIA FUNGAL
     Dosage: 480-720 MG/DAY, UNKNOWN FREQ.
     Route: 041
     Dates: start: 20181228, end: 20190101
  44. ASP2215 [Suspect]
     Active Substance: GILTERITINIB
     Route: 048
     Dates: start: 20190102, end: 20190104
  45. ASP2215 [Suspect]
     Active Substance: GILTERITINIB
     Route: 048
     Dates: start: 20190105, end: 20190111
  46. SOLU-CORTEF [Concomitant]
     Active Substance: HYDROCORTISONE SODIUM SUCCINATE
     Indication: PRODUCT USED FOR UNKNOWN INDICATION
     Route: 065
     Dates: start: 20181211, end: 20190214
  47. CALONAL [Concomitant]
     Active Substance: ACETAMINOPHEN
     Indication: ABDOMINAL PAIN LOWER
     Dosage: 600 MG/DAY, UNKNOWN FREQ.
     Route: 048
     Dates: start: 20181224, end: 20181225
  48. ACETAMINOPHEN. [Concomitant]
     Active Substance: ACETAMINOPHEN
     Indication: FEBRILE NEUTROPENIA
     Dosage: 700-2800 MG/DAY, UNKNOWN FREQ.
     Route: 042
     Dates: start: 20181225, end: 20190101
  49. MEROPENEM. [Concomitant]
     Active Substance: MEROPENEM
     Indication: FEBRILE NEUTROPENIA
     Dosage: 0.75-3 G, AS NEEDED
     Route: 041
     Dates: end: 20190128
  50. RESTAMIN #1 [Concomitant]
     Indication: PRODUCT USED FOR UNKNOWN INDICATION
     Route: 065
     Dates: start: 20181229, end: 20181229

REACTIONS (14)
  - Abdominal pain lower [Recovering/Resolving]
  - Hypokalaemia [Recovering/Resolving]
  - Haemophagocytic lymphohistiocytosis [Recovering/Resolving]
  - C-reactive protein increased [Not Recovered/Not Resolved]
  - Febrile neutropenia [Recovered/Resolved]
  - Bone marrow failure [Recovered/Resolved]
  - Pneumonia fungal [Fatal]
  - Hepatic function abnormal [Unknown]
  - Rash [Recovering/Resolving]
  - Product administered to patient of inappropriate age [Unknown]
  - Diabetes mellitus [Not Recovered/Not Resolved]
  - Pyrexia [Recovering/Resolving]
  - Hypertension [Not Recovered/Not Resolved]
  - Off label use [Unknown]

NARRATIVE: CASE EVENT DATE: 20181210
